FAERS Safety Report 14432311 (Version 2)
Quarter: 2018Q4

REPORT INFORMATION
  Report Type: Spontaneous
  Country: US (occurrence: US)
  Receive Date: 20180124
  Receipt Date: 20181217
  Transmission Date: 20190204
  Serious: Yes (Other)
  Sender: FDA-Public Use
  Company Number: US-PFIZER INC-2018030724

PATIENT
  Age: 42 Year
  Sex: Male
  Weight: 99 kg

DRUGS (5)
  1. THIOTHIXENE [TIOTIXENE] [Concomitant]
     Dosage: UNK
     Dates: start: 2016
  2. ADVIL [Suspect]
     Active Substance: IBUPROFEN
     Indication: SCIATICA
     Dosage: 1200 MG, DAILY (2 CAPLETS EVERY 3 OR 4 HOURS)
     Route: 048
     Dates: start: 201801, end: 2018
  3. HYDROXYZINE [Concomitant]
     Active Substance: HYDROXYZINE HYDROCHLORIDE
     Dosage: UNK
     Dates: start: 2016
  4. OXCARBAZEPINE. [Concomitant]
     Active Substance: OXCARBAZEPINE
     Dosage: UNK
     Dates: start: 2016
  5. BENZTROPINE [BENZATROPINE] [Concomitant]
     Active Substance: BENZTROPINE
     Dosage: UNK
     Dates: start: 2016

REACTIONS (6)
  - Exophthalmos [Recovered/Resolved]
  - Throat irritation [Recovered/Resolved]
  - Product label issue [Recovered/Resolved]
  - Pharyngeal disorder [Recovered/Resolved]
  - Vomiting [Recovered/Resolved]
  - Dyspnoea [Recovered/Resolved]

NARRATIVE: CASE EVENT DATE: 201801
